FAERS Safety Report 5118559-8 (Version None)
Quarter: 2006Q3

REPORT INFORMATION
  Report Type: 
  Country: None (occurrence: None)
  Receive Date: 20060927
  Receipt Date: 20060914
  Transmission Date: 20061208
  Serious: Yes (Hospitalization, Other)
  Sender: FDA-Public Use
  Company Number: 2006089830

PATIENT
  Age: 70 Year
  Sex: Male

DRUGS (6)
  1. CABERGOLINE [Suspect]
     Indication: PARKINSON'S DISEASE
     Dosage: 0.5 MG (0.5 MG, 1 IN 1 D), ORAL
     Route: 048
     Dates: start: 20040519, end: 20040524
  2. LITHIUM (LITHIUM) [Concomitant]
  3. ENDEP [Concomitant]
  4. OROXINE (LEVOTHYROXINE SODIUM) [Concomitant]
  5. PRESSIN (PRAZOSIN HYDROCHLORIDE) [Concomitant]
  6. LITHICARB (LITHIUM CARBONATE) [Concomitant]

REACTIONS (2)
  - AGITATION [None]
  - HALLUCINATIONS, MIXED [None]
